FAERS Safety Report 9060285 (Version 1)
Quarter: 2013Q1

REPORT INFORMATION
  Report Type: Spontaneous
  Country: US (occurrence: None)
  Receive Date: 20130118
  Receipt Date: 20130118
  Transmission Date: 20140127
  Serious: Yes (Death)
  Sender: FDA-Public Use
  Company Number: AUR-APL-2013-00510

PATIENT
  Age: 63 Year
  Sex: Female

DRUGS (8)
  1. VENLAFAXINE [Suspect]
     Route: 048
  2. TOPIRAMATE (TOPIRAMATE) [Suspect]
  3. BUPROPION [Suspect]
  4. ACETAMINOPHEN/ HYDROCODONE [Suspect]
  5. ETHANOL [Suspect]
  6. CLONAZEPAM [Suspect]
  7. ESZOPICLONE [Suspect]
  8. ACETAMINOPHEN (PARACETAMOL) [Suspect]

REACTIONS (2)
  - Completed suicide [None]
  - Toxicity to various agents [None]
